FAERS Safety Report 6119328-2 (Version None)
Quarter: 2009Q1

REPORT INFORMATION
  Report Type: 
  Country: None (occurrence: None)
  Receive Date: 20090316
  Receipt Date: 20090309
  Transmission Date: 20090719
  Serious: Yes (Other)
  Sender: FDA-Public Use
  Company Number: PHHY2009BR08699

PATIENT
  Age: 31 Year
  Sex: Male

DRUGS (6)
  1. TEGRETOL [Suspect]
     Dosage: UNK
  2. TEGRETOL [Suspect]
     Dosage: 1 DF, TID
     Route: 048
  3. GARDENAL [Concomitant]
     Dosage: 1 DF, TID
  4. MAGNESIUM CHELATE [Concomitant]
     Dosage: 2 CAPS WHEN WOKE UP + AT 12H + AT 15H + AT 18H + AT 21H + BEFORE SLEEPING
  5. DEPAKENE [Concomitant]
     Dosage: UNK
  6. PHENOBARBITAL TAB [Concomitant]
     Dosage: UNK

REACTIONS (4)
  - ACTIVITIES OF DAILY LIVING IMPAIRED [None]
  - CONVULSION [None]
  - GRAND MAL CONVULSION [None]
  - PETIT MAL EPILEPSY [None]
